FAERS Safety Report 10262017 (Version 2)
Quarter: 2014Q3

REPORT INFORMATION
  Report Type: Spontaneous
  Country: US (occurrence: US)
  Receive Date: 20140626
  Receipt Date: 20140709
  Transmission Date: 20150326
  Serious: Yes (Other)
  Sender: FDA-Public Use
  Company Number: US-PFIZER INC-2014171551

PATIENT
  Age: 33 Year
  Sex: Female

DRUGS (11)
  1. IBUPROFEN. [Suspect]
     Active Substance: IBUPROFEN
     Indication: BACK PAIN
  2. PENICILLIN VK [Concomitant]
     Active Substance: PENICILLIN V POTASSIUM
     Indication: RHEUMATIC FEVER
  3. AMOXICILLIN/CLAVULANATE POTASSIUM [Concomitant]
     Active Substance: AMOXICILLIN\CLAVULANATE POTASSIUM
     Indication: RHEUMATIC FEVER
     Dosage: UNK
  4. PIPERACILLIN/TAZOBACTAM [Concomitant]
     Indication: RHEUMATIC FEVER
  5. IBUPROFEN. [Suspect]
     Active Substance: IBUPROFEN
     Indication: CHEST PAIN
  6. VANCOMYCIN [Concomitant]
     Active Substance: VANCOMYCIN
     Indication: RHEUMATIC FEVER
  7. AZITHROMYCIN [Concomitant]
     Active Substance: AZITHROMYCIN ANHYDROUS
     Dosage: UNK
  8. IBUPROFEN. [Suspect]
     Active Substance: IBUPROFEN
     Indication: PAIN
  9. IBUPROFEN. [Suspect]
     Active Substance: IBUPROFEN
     Indication: PLEURITIC PAIN
  10. HYDROMORPHONE [Concomitant]
     Active Substance: HYDROMORPHONE
     Indication: PAIN
     Dosage: UNK
  11. IBUPROFEN. [Suspect]
     Active Substance: IBUPROFEN
     Indication: ABDOMINAL PAIN
     Dosage: 800 MG, 4X/DAY

REACTIONS (3)
  - Nephropathy toxic [Recovered/Resolved]
  - Overdose [Recovered/Resolved]
  - Renal failure acute [Recovered/Resolved]
